FAERS Safety Report 14627048 (Version 1)
Quarter: 2018Q1

REPORT INFORMATION
  Report Type: Spontaneous
  Country: DE (occurrence: DE)
  Receive Date: 20180312
  Receipt Date: 20180312
  Transmission Date: 20180509
  Serious: Yes (Other)
  Sender: FDA-Public Use
  Company Number: DE-009507513-1803DEU001856

PATIENT
  Sex: Male

DRUGS (2)
  1. DILTIAZEM. [Interacting]
     Active Substance: DILTIAZEM
     Dosage: UNK
     Dates: start: 2010
  2. ZOCOR [Suspect]
     Active Substance: SIMVASTATIN
     Indication: BLOOD CHOLESTEROL INCREASED
     Dosage: 40 MG, UNK
     Route: 048
     Dates: start: 2010

REACTIONS (5)
  - Type 2 diabetes mellitus [Unknown]
  - Pancreatitis [Not Recovered/Not Resolved]
  - Alcohol problem [Unknown]
  - Neuropathy peripheral [Not Recovered/Not Resolved]
  - Drug interaction [Unknown]

NARRATIVE: CASE EVENT DATE: 2016
